FAERS Safety Report 4821092-1 (Version None)
Quarter: 2005Q4

REPORT INFORMATION
  Report Type: 
  Country: None (occurrence: None)
  Receive Date: 20051104
  Receipt Date: 20051028
  Transmission Date: 20060501
  Serious: Yes (Death, Other)
  Sender: FDA-Public Use
  Company Number: NL-MERCK-0510USA09986

PATIENT
  Age: 30 Year
  Sex: Female

DRUGS (5)
  1. ELSPAR [Suspect]
     Indication: ACUTE LYMPHOCYTIC LEUKAEMIA
     Route: 042
  2. PREDNISONE [Concomitant]
     Route: 065
  3. VINCRISTINE SULFATE [Concomitant]
     Route: 065
  4. DAUNORUBICIN [Concomitant]
     Route: 065
  5. METHOTREXATE [Concomitant]
     Route: 065

REACTIONS (9)
  - ABORTION COMPLETE [None]
  - ABORTION MISSED [None]
  - ACUTE RESPIRATORY DISTRESS SYNDROME [None]
  - BONE MARROW FAILURE [None]
  - DEATH [None]
  - DRUG EXPOSURE DURING PREGNANCY [None]
  - POST PROCEDURAL COMPLICATION [None]
  - SEPSIS [None]
  - STEM CELL TRANSPLANT [None]
